FAERS Safety Report 25468189 (Version 2)
Quarter: 2025Q3

REPORT INFORMATION
  Report Type: Spontaneous
  Country: US (occurrence: US)
  Receive Date: 20250623
  Receipt Date: 20250801
  Transmission Date: 20251020
  Serious: No
  Sender: BLUEPRINT MEDICINES
  Company Number: US-Blueprint Medicines Corporation-2025-AER-01332

PATIENT
  Age: 39 Year
  Sex: Female

DRUGS (1)
  1. AYVAKIT [Suspect]
     Active Substance: AVAPRITINIB
     Indication: Systemic mastocytosis
     Route: 065

REACTIONS (9)
  - Alopecia [Unknown]
  - Arthralgia [Unknown]
  - Pain [Unknown]
  - Weight increased [Unknown]
  - Feeling abnormal [Unknown]
  - Eye pruritus [Unknown]
  - Limb discomfort [Unknown]
  - Back pain [Unknown]
  - Menopausal symptoms [Unknown]
